FAERS Safety Report 10232010 (Version 1)
Quarter: 2014Q2

REPORT INFORMATION
  Report Type: Spontaneous
  Country: US (occurrence: US)
  Receive Date: 20140612
  Receipt Date: 20140612
  Transmission Date: 20141212
  Serious: No
  Sender: FDA-Public Use
  Company Number: US-BIOGENIDEC-2014BI048653

PATIENT
  Age: 43 Year
  Sex: Female

DRUGS (4)
  1. TECFIDERA [Suspect]
     Indication: MULTIPLE SCLEROSIS
     Route: 048
     Dates: start: 20140428
  2. CIPROFLOXACIN [Concomitant]
  3. HYDROCODONE-ACETAMINOPHEN [Concomitant]
  4. OXYBUTYNIN CHLORIDE [Concomitant]

REACTIONS (2)
  - Musculoskeletal stiffness [Not Recovered/Not Resolved]
  - Flushing [Not Recovered/Not Resolved]
